FAERS Safety Report 13280483 (Version 1)
Quarter: 2017Q1

REPORT INFORMATION
  Report Type: Spontaneous
  Country: US (occurrence: US)
  Receive Date: 20170301
  Receipt Date: 20170301
  Transmission Date: 20170428
  Serious: No
  Sender: FDA-Public Use
  Company Number: PHEH2017US005314

PATIENT
  Sex: Male

DRUGS (1)
  1. RITALIN LA [Suspect]
     Active Substance: METHYLPHENIDATE HYDROCHLORIDE
     Indication: ATTENTION DEFICIT/HYPERACTIVITY DISORDER
     Dosage: 1 DF, TID
     Route: 048

REACTIONS (5)
  - Hyperhidrosis [Unknown]
  - Heart rate abnormal [Unknown]
  - Dizziness [Unknown]
  - Nausea [Unknown]
  - Chest pain [Unknown]
